FAERS Safety Report 8333746-3 (Version None)
Quarter: 2012Q2

REPORT INFORMATION
  Report Type: 
  Country: None (occurrence: None)
  Receive Date: 20120503
  Receipt Date: 20120503
  Transmission Date: 20120825
  Serious: Yes (Life-Threatening, Hospitalization)
  Sender: FDA-Public Use
  Company Number: None

PATIENT
  Age: 24 Year
  Sex: Female
  Weight: 123 kg

DRUGS (1)
  1. YAZ [Suspect]
     Indication: PREMENSTRUAL SYNDROME
     Dosage: |FREQ: ONCE A DAY||ROUTE: ORAL|
     Route: 048
     Dates: start: 20110625, end: 20120312

REACTIONS (1)
  - PULMONARY EMBOLISM [None]
